FAERS Safety Report 7909474-2 (Version None)
Quarter: 2011Q4

REPORT INFORMATION
  Report Type: 
  Country: None (occurrence: None)
  Receive Date: 20111111
  Receipt Date: 20111102
  Transmission Date: 20120403
  Serious: Yes (Hospitalization)
  Sender: FDA-Public Use
  Company Number: US-BRISTOL-MYERS SQUIBB COMPANY-16036733

PATIENT
  Age: 63 Year
  Sex: Male
  Weight: 96 kg

DRUGS (11)
  1. CETUXIMAB [Suspect]
     Indication: NON-SMALL CELL LUNG CANCER
     Dosage: LAST RECEIVED ONE HALF (450MG)DOSE ON 14JUL11,HELD ON 21JUL11
     Dates: start: 20110714, end: 20110714
  2. GEMCITABINE HYDROCHLORIDE [Suspect]
     Indication: NON-SMALL CELL LUNG CANCER
     Dosage: LAST RECEIVED:04AUG11 INT:11AUG11
     Dates: start: 20110714, end: 20110804
  3. LOVASTATIN [Concomitant]
     Dates: start: 20000101
  4. INSULIN ASPART [Concomitant]
  5. CISPLATIN [Suspect]
     Indication: NON-SMALL CELL LUNG CANCER
     Dosage: LAST RECEIVED ON :04AUG11;22DAYS INT:25AUG11
     Dates: start: 20110714
  6. INSULIN [Concomitant]
     Dates: start: 20110815
  7. CIALIS [Concomitant]
     Dates: start: 20110401
  8. FLOMAX [Concomitant]
     Dates: start: 20110301
  9. ASPIRIN [Concomitant]
     Dates: start: 20000101
  10. HYDROCODONE BITARTRATE [Concomitant]
     Dates: start: 20090101
  11. VALIUM [Concomitant]
     Dates: start: 20090101

REACTIONS (2)
  - INTRACARDIAC THROMBUS [None]
  - EJECTION FRACTION DECREASED [None]
